FAERS Safety Report 6581660-6 (Version None)
Quarter: 2010Q1

REPORT INFORMATION
  Report Type: 
  Country: None (occurrence: None)
  Receive Date: 20100215
  Receipt Date: 20100204
  Transmission Date: 20100710
  Serious: No
  Sender: FDA-Public Use
  Company Number: US-B.I. PHARMACEUTICALS,INC./RIDGEFIELD-2009-BP-09813BP

PATIENT
  Sex: Female

DRUGS (7)
  1. SPIRIVA [Suspect]
     Indication: EMPHYSEMA
     Dosage: 18 MCG
     Route: 055
     Dates: start: 20090701
  2. FLOVENT [Suspect]
     Indication: EMPHYSEMA
     Dates: start: 20090701, end: 20090722
  3. TIMALOL [Concomitant]
     Indication: GLAUCOMA
  4. VETREUM [Concomitant]
     Indication: REFLUX OESOPHAGITIS
     Dosage: 40 MG
  5. COZAAR [Concomitant]
     Indication: HYPERTENSION
     Dosage: 100 MG
  6. SIMVASTATIN [Concomitant]
     Indication: BLOOD CHOLESTEROL INCREASED
     Dosage: 10 MG
  7. DILTIAZEM HCL [Concomitant]
     Indication: RAYNAUD'S PHENOMENON
     Dosage: 180 MG

REACTIONS (5)
  - AGEUSIA [None]
  - APHONIA [None]
  - DRY THROAT [None]
  - NASAL DRYNESS [None]
  - OROPHARYNGEAL PAIN [None]
